FAERS Safety Report 20845149 (Version 1)
Quarter: 2022Q2

REPORT INFORMATION
  Report Type: Spontaneous
  Country: US (occurrence: None)
  Receive Date: 20220518
  Receipt Date: 20220518
  Transmission Date: 20220721
  Serious: Yes (Death, Hospitalization)
  Sender: FDA-Public Use
  Company Number: None

PATIENT
  Sex: Male
  Weight: 155.6 kg

DRUGS (6)
  1. CYCLOPHOSPHAMIDE [Suspect]
     Active Substance: CYCLOPHOSPHAMIDE
  2. CYTARABINE [Concomitant]
     Active Substance: CYTARABINE
  3. PEG-L-ASPRAGINASE (PEGASPARGASE, ONCOSPAR) [Concomitant]
  4. THIOGUANINE ANHYDROUS [Concomitant]
     Active Substance: THIOGUANINE ANHYDROUS
  5. DEXAMETHASONE [Concomitant]
  6. VINCRISTINE SULFATE [Concomitant]
     Active Substance: VINCRISTINE SULFATE

REACTIONS (14)
  - Febrile neutropenia [None]
  - Musculoskeletal pain [None]
  - COVID-19 [None]
  - Diarrhoea [None]
  - Blood urea increased [None]
  - Hypotension [None]
  - Disorientation [None]
  - Lethargy [None]
  - Abdominal pain [None]
  - Muscle twitching [None]
  - Blood glucose decreased [None]
  - Septic shock [None]
  - Acute kidney injury [None]
  - General physical health deterioration [None]

NARRATIVE: CASE EVENT DATE: 20220418
